FAERS Safety Report 13487578 (Version 1)
Quarter: 2017Q2

REPORT INFORMATION
  Report Type: Spontaneous
  Country: US (occurrence: US)
  Receive Date: 20170426
  Receipt Date: 20170426
  Transmission Date: 20170830
  Serious: Yes (Hospitalization)
  Sender: FDA-Public Use
  Company Number: US-ALKERMES INC.-ALK-2016-003276

PATIENT
  Sex: Male

DRUGS (1)
  1. VIVITROL [Suspect]
     Active Substance: NALTREXONE
     Indication: PRODUCT USED FOR UNKNOWN INDICATION
     Dosage: 380 MG, QMO
     Route: 030
     Dates: start: 201608

REACTIONS (5)
  - Seizure [Unknown]
  - Road traffic accident [Unknown]
  - Foaming at mouth [Unknown]
  - Unresponsive to stimuli [Unknown]
  - Eye movement disorder [Unknown]

NARRATIVE: CASE EVENT DATE: 201610
